FAERS Safety Report 9028226 (Version 1)
Quarter: 2013Q1

REPORT INFORMATION
  Report Type: Spontaneous
  Country: US (occurrence: None)
  Receive Date: 20130115
  Receipt Date: 20130115
  Transmission Date: 20140127
  Serious: Yes (Other)
  Sender: FDA-Public Use
  Company Number: None

PATIENT
  Age: 30 Year
  Sex: Female
  Weight: 58.97 kg

DRUGS (4)
  1. SAPHRIS [Suspect]
     Indication: BIPOLAR I DISORDER
     Route: 060
     Dates: start: 20121015, end: 20121025
  2. SAPHRIS [Suspect]
     Route: 060
     Dates: start: 20121015, end: 20121025
  3. LAMICTAL [Concomitant]
  4. CELEXA [Concomitant]

REACTIONS (5)
  - Increased appetite [None]
  - Suicidal ideation [None]
  - Impaired driving ability [None]
  - Mania [None]
  - Impaired work ability [None]
